FAERS Safety Report 6437870-1 (Version None)
Quarter: 2009Q4

REPORT INFORMATION
  Report Type: 
  Country: None (occurrence: None)
  Receive Date: 20091112
  Receipt Date: 20091103
  Transmission Date: 20100525
  Serious: Yes (Hospitalization, Other)
  Sender: FDA-Public Use
  Company Number: US-AMGEN-QUU365130

PATIENT
  Sex: Female
  Weight: 95.3 kg

DRUGS (12)
  1. ENBREL [Suspect]
     Indication: PSORIASIS
     Route: 058
     Dates: start: 20060628, end: 20090819
  2. METHOCARBAMOL [Concomitant]
  3. ALBUTEROL [Concomitant]
  4. LEVOTHYROXINE SODIUM [Concomitant]
  5. LISINOPRIL [Concomitant]
  6. HYDROCHLOROTHIAZIDE [Concomitant]
  7. ASPIRIN [Concomitant]
  8. FLUOCINOLIDE [Concomitant]
     Route: 061
  9. AMMONIUM LACTATE [Concomitant]
  10. CLOBETASOL PROPIONATE [Concomitant]
  11. DOVONEX [Concomitant]
  12. ALBUTEROL SULFATE AUTOHALER [Concomitant]

REACTIONS (4)
  - DELUSION [None]
  - PSYCHOTIC DISORDER [None]
  - PYOMYOSITIS [None]
  - STAPHYLOCOCCAL BACTERAEMIA [None]
